FAERS Safety Report 9505676 (Version 1)
Quarter: 2013Q1

REPORT INFORMATION
  Report Type: Spontaneous
  Country: US (occurrence: None)
  Receive Date: 20130220
  Receipt Date: 20130220
  Transmission Date: 20140127
  Serious: No
  Sender: FDA-Public Use
  Company Number: 1000040003

PATIENT
  Age: 55 Year
  Sex: Male

DRUGS (7)
  1. VIIBRYD [Suspect]
     Indication: DEPRESSION
     Route: 048
     Dates: start: 20121029
  2. KLONOPIN [Concomitant]
  3. TRAZODONE (TRAZODONE) (TRAZODONE) [Concomitant]
  4. IBUPROFEN (IBUPROFEN) (IBUPROFEN) [Concomitant]
  5. PERCOCT (ACETAMINOPHEN, OXYCODONE) (ACETAMINOPHEN OXYCODONE) [Concomitant]
  6. METHADONE (METHASONE) (METHADONE) [Concomitant]
  7. ZANAFLEX (TIZANIDINE HYDROCHLORIDE) (TIZANIDINE HYDROCHLORIDE) [Concomitant]

REACTIONS (6)
  - Cold sweat [None]
  - Hot flush [None]
  - Insomnia [None]
  - Diarrhoea [None]
  - Nausea [None]
  - Dizziness [None]
